FAERS Safety Report 22212258 (Version 1)
Quarter: 2023Q2

REPORT INFORMATION
  Report Type: Spontaneous
  Country: CA (occurrence: None)
  Receive Date: 20230414
  Receipt Date: 20230414
  Transmission Date: 20230722
  Serious: Yes (Other)
  Sender: FDA-Public Use
  Company Number: 2020SF09871

PATIENT
  Age: 51 Year
  Sex: Female

DRUGS (7)
  1. QUETIAPINE FUMARATE [Suspect]
     Active Substance: QUETIAPINE FUMARATE
     Indication: Product used for unknown indication
     Dosage: 50.0MG UNKNOWN
     Route: 048
  2. SANDOSTATIN LAR DEPOT [Suspect]
     Active Substance: OCTREOTIDE ACETATE
     Indication: Acromegaly
     Route: 030
  3. SANDOSTATIN LAR DEPOT [Suspect]
     Active Substance: OCTREOTIDE ACETATE
     Indication: Acromegaly
     Route: 030
  4. SANDOSTATIN LAR DEPOT [Suspect]
     Active Substance: OCTREOTIDE ACETATE
     Indication: Acromegaly
     Route: 030
  5. SANDOSTATIN LAR DEPOT [Suspect]
     Active Substance: OCTREOTIDE ACETATE
     Indication: Acromegaly
     Route: 030
  6. SANDOSTATIN LAR DEPOT [Suspect]
     Active Substance: OCTREOTIDE ACETATE
     Indication: Acromegaly
     Route: 030
     Dates: start: 20120406
  7. PROLIA [Concomitant]
     Active Substance: DENOSUMAB
     Indication: Product used for unknown indication
     Route: 065

REACTIONS (32)
  - Body temperature decreased [Unknown]
  - Body temperature increased [Unknown]
  - Fatigue [Unknown]
  - Heart rate increased [Not Recovered/Not Resolved]
  - Hypersomnia [Unknown]
  - Agitation [Unknown]
  - Anxiety [Unknown]
  - Back injury [Unknown]
  - Bacterial infection [Recovered/Resolved]
  - Blood pressure systolic increased [Unknown]
  - Diarrhoea [Recovered/Resolved]
  - Fall [Unknown]
  - Hand fracture [Unknown]
  - Head injury [Unknown]
  - Headache [Unknown]
  - Influenza like illness [Recovering/Resolving]
  - Injection site bruising [Unknown]
  - Injection site pain [Not Recovered/Not Resolved]
  - Malaise [Unknown]
  - Memory impairment [Unknown]
  - Muscle strain [Unknown]
  - Musculoskeletal discomfort [Unknown]
  - Osteoporosis [Unknown]
  - Sleep apnoea syndrome [Unknown]
  - Stress [Unknown]
  - Urinary tract infection [Unknown]
  - Peripheral swelling [Recovering/Resolving]
  - Somnolence [Unknown]
  - Vomiting [Recovered/Resolved]
  - Nausea [Not Recovered/Not Resolved]
  - Diabetes mellitus [Not Recovered/Not Resolved]
  - Mass [Not Recovered/Not Resolved]

NARRATIVE: CASE EVENT DATE: 20140330
